FAERS Safety Report 7914427-4 (Version None)
Quarter: 2011Q4

REPORT INFORMATION
  Report Type: 
  Country: None (occurrence: None)
  Receive Date: 20111115
  Receipt Date: 20111107
  Transmission Date: 20120403
  Serious: Yes (Other)
  Sender: FDA-Public Use
  Company Number: US-AMGEN-USASP2011058064

PATIENT
  Sex: Female

DRUGS (1)
  1. ARANESP [Suspect]
     Indication: LIVER TRANSPLANT
     Dosage: UNK

REACTIONS (4)
  - FATIGUE [None]
  - DYSPNOEA [None]
  - HAEMOGLOBIN DECREASED [None]
  - LIVER TRANSPLANT REJECTION [None]
